FAERS Safety Report 5840245-7 (Version None)
Quarter: 2008Q3

REPORT INFORMATION
  Report Type: 
  Country: None (occurrence: None)
  Receive Date: 20080807
  Receipt Date: 20080807
  Transmission Date: 20090109
  Serious: Yes (Other)
  Sender: FDA-Public Use
  Company Number: None

PATIENT
  Age: 64 Year
  Sex: Female
  Weight: 68.9467 kg

DRUGS (2)
  1. SERTRALINE [Suspect]
     Indication: NERVE INJURY
     Dosage: 1 - 100MG ONCE PO
     Route: 048
     Dates: start: 20080510, end: 20080510
  2. ZOLOFT [Suspect]
     Dosage: 1 - 100MG ONCE PO
     Route: 048

REACTIONS (9)
  - ABDOMINAL PAIN UPPER [None]
  - DIARRHOEA [None]
  - FEELING ABNORMAL [None]
  - FLATULENCE [None]
  - HALLUCINATION [None]
  - HEADACHE [None]
  - NAUSEA [None]
  - PALPITATIONS [None]
  - PHARMACEUTICAL PRODUCT COMPLAINT [None]
